FAERS Safety Report 9199493 (Version 1)
Quarter: 2013Q1

REPORT INFORMATION
  Report Type: Spontaneous
  Country: US (occurrence: US)
  Receive Date: 20130329
  Receipt Date: 20130329
  Transmission Date: 20140127
  Serious: No
  Sender: FDA-Public Use
  Company Number: US-PFIZER INC-2013100546

PATIENT
  Age: 54 Year
  Sex: Female
  Weight: 89.8 kg

DRUGS (8)
  1. LYRICA [Suspect]
     Indication: NEURALGIA
     Dosage: 75 MG, 2X/DAY
     Dates: start: 201303
  2. LYRICA [Suspect]
     Indication: MYALGIA
  3. HYDROXYCHLOROQUINE [Suspect]
     Indication: MYALGIA
     Dosage: UNK, 2X/DAY
     Dates: start: 2012
  4. METFORMIN [Concomitant]
     Indication: DIABETES MELLITUS
     Dosage: UNK, 2X/DAY
  5. CELEBREX [Concomitant]
     Indication: OSTEOARTHRITIS
     Dosage: 200 MG, UNK
  6. HYDROCODONE [Concomitant]
     Indication: OSTEOARTHRITIS
     Dosage: 10/325MG, UNK
  7. HYDROCODONE [Concomitant]
     Indication: SURGERY
  8. HYDROCODONE [Concomitant]
     Indication: NECK SURGERY

REACTIONS (4)
  - Drug ineffective [Unknown]
  - Vision blurred [Not Recovered/Not Resolved]
  - Pre-existing condition improved [Unknown]
  - Therapeutic response unexpected [Unknown]
